FAERS Safety Report 10086641 (Version 1)
Quarter: 2014Q2

REPORT INFORMATION
  Report Type: Spontaneous
  Country: US (occurrence: US)
  Receive Date: 20140418
  Receipt Date: 20140418
  Transmission Date: 20141212
  Serious: Yes (Hospitalization)
  Sender: FDA-Public Use
  Company Number: US-PFIZER INC-2014107667

PATIENT
  Age: 59 Year
  Sex: Male
  Weight: 113.38 kg

DRUGS (1)
  1. LYRICA [Suspect]
     Indication: NEUROPATHY PERIPHERAL
     Dosage: 150 MG (75 MG X 2), 2X/DAY
     Route: 048
     Dates: start: 2004

REACTIONS (1)
  - Hydrocephalus [Unknown]
